FAERS Safety Report 6589287-7 (Version None)
Quarter: 2010Q1

REPORT INFORMATION
  Report Type: 
  Country: None (occurrence: None)
  Receive Date: 20100218
  Receipt Date: 20100204
  Transmission Date: 20100710
  Serious: Yes (Hospitalization)
  Sender: FDA-Public Use
  Company Number: DE-CELGENEUS-062-21880-10010968

PATIENT
  Age: 62 Year
  Sex: Male
  Weight: 94 kg

DRUGS (8)
  1. REVLIMID [Suspect]
     Indication: PLASMACYTOMA
     Route: 048
     Dates: start: 20080812, end: 20091116
  2. REVLIMID [Suspect]
     Route: 048
     Dates: start: 20091201
  3. DEXAMETHASONE [Concomitant]
     Indication: PLASMACYTOMA
     Route: 048
     Dates: start: 20080812, end: 20091116
  4. CLEXANE [Concomitant]
     Indication: PROPHYLAXIS
     Route: 065
     Dates: start: 20080812
  5. BELOC ZOK [Concomitant]
     Indication: DRUG USE FOR UNKNOWN INDICATION
     Route: 065
  6. PANTOZOL [Concomitant]
     Indication: DRUG USE FOR UNKNOWN INDICATION
     Route: 065
  7. ZOMETA [Concomitant]
     Indication: DRUG USE FOR UNKNOWN INDICATION
     Route: 051
  8. HUMALOG [Concomitant]
     Indication: DRUG USE FOR UNKNOWN INDICATION
     Dosage: DEPENDING ON BLOOD SUGAR
     Route: 065

REACTIONS (1)
  - SARCOMA [None]
